FAERS Safety Report 12582551 (Version 2)
Quarter: 2016Q3

REPORT INFORMATION
  Report Type: Report from Study
  Country: US (occurrence: US)
  Receive Date: 20160722
  Receipt Date: 20160726
  Transmission Date: 20161109
  Serious: Yes (Hospitalization)
  Sender: FDA-Public Use
  Company Number: PHHY2016US099061

PATIENT
  Age: 7 Year
  Sex: Female
  Weight: 68.5 kg

DRUGS (28)
  1. FERROUS SULFATE. [Concomitant]
     Active Substance: FERROUS SULFATE
     Indication: ANAEMIA
     Dosage: 325 MG, QD
     Route: 065
     Dates: start: 201601
  2. OMEPRAZOLE. [Concomitant]
     Active Substance: OMEPRAZOLE
     Indication: PROPHYLAXIS AGAINST GASTROINTESTINAL ULCER
     Dosage: 40 MG, QD
     Route: 065
     Dates: start: 201509
  3. MEDROL [Concomitant]
     Active Substance: METHYLPREDNISOLONE
     Indication: JUVENILE IDIOPATHIC ARTHRITIS
     Dosage: 40 MG, QD
     Route: 065
  4. NAPROSYN [Concomitant]
     Active Substance: NAPROXEN
     Dosage: 500 MG, QD
     Route: 065
     Dates: start: 20160113, end: 20160413
  5. ACTEMRA [Suspect]
     Active Substance: TOCILIZUMAB
     Indication: JUVENILE IDIOPATHIC ARTHRITIS
     Dosage: 500 MG, QD
     Route: 065
     Dates: start: 20160621
  6. KINERET [Concomitant]
     Active Substance: ANAKINRA
     Dosage: 100 MG, QD
     Route: 065
     Dates: start: 20160211, end: 20160224
  7. RELAFEN [Concomitant]
     Active Substance: NABUMETONE
     Indication: JUVENILE IDIOPATHIC ARTHRITIS
     Dosage: 500 MG, QD
     Route: 065
     Dates: start: 20151028, end: 20151118
  8. ISRADIPINE. [Concomitant]
     Active Substance: ISRADIPINE
     Indication: PRODUCT USED FOR UNKNOWN INDICATION
     Dosage: 2.5 MG, UNK
     Route: 065
  9. ACZ885 [Suspect]
     Active Substance: CANAKINUMAB
     Dosage: 180 MG, QD
     Route: 058
     Dates: start: 20160428, end: 20160608
  10. MEDROL [Concomitant]
     Active Substance: METHYLPREDNISOLONE
     Dosage: 20 MG, UNK
     Route: 065
     Dates: start: 20160430
  11. ACZ885 [Suspect]
     Active Substance: CANAKINUMAB
     Indication: JUVENILE IDIOPATHIC ARTHRITIS
     Dosage: 180 MG, QD
     Route: 058
     Dates: start: 20160325, end: 20160413
  12. SANDIMMUNE NEORAL [Suspect]
     Active Substance: CYCLOSPORINE
     Dosage: 150 MG, QD
     Route: 065
     Dates: start: 20160211, end: 20160509
  13. SANDIMMUNE NEORAL [Suspect]
     Active Substance: CYCLOSPORINE
     Dosage: UNK
     Route: 065
     Dates: start: 20160706
  14. KINERET [Concomitant]
     Active Substance: ANAKINRA
     Indication: JUVENILE IDIOPATHIC ARTHRITIS
     Dosage: 100 MG, QD
     Route: 065
     Dates: start: 20160113, end: 20160211
  15. OMEPRAZOLE. [Concomitant]
     Active Substance: OMEPRAZOLE
     Indication: NAUSEA
  16. BENADRYL [Concomitant]
     Active Substance: DIPHENHYDRAMINE HYDROCHLORIDE
     Indication: PRODUCT USED FOR UNKNOWN INDICATION
     Dosage: 25 MG, QD
     Route: 065
     Dates: start: 20160706, end: 20160706
  17. HUMIRA [Concomitant]
     Active Substance: ADALIMUMAB
     Indication: JUVENILE IDIOPATHIC ARTHRITIS
     Dosage: 40 MG, QD
     Route: 065
     Dates: start: 20160106, end: 20160113
  18. PREDNISOLONE ACETATE. [Concomitant]
     Active Substance: PREDNISOLONE ACETATE
     Indication: UVEITIS
     Dosage: 3 DRP (PER EYE), QD
     Route: 065
     Dates: start: 201512
  19. TYLENOL [Concomitant]
     Active Substance: ACETAMINOPHEN
     Indication: PRODUCT USED FOR UNKNOWN INDICATION
     Dosage: 812.5 MG, QD
     Route: 065
     Dates: start: 20160706, end: 20160706
  20. SANDIMMUNE NEORAL [Suspect]
     Active Substance: CYCLOSPORINE
     Indication: JUVENILE IDIOPATHIC ARTHRITIS
     Dosage: 100 MG, QD
     Route: 065
     Dates: start: 20160113, end: 20160211
  21. ACTEMRA [Suspect]
     Active Substance: TOCILIZUMAB
     Dosage: UNK
     Route: 065
     Dates: start: 20160706
  22. RELAFEN [Concomitant]
     Active Substance: NABUMETONE
     Dosage: 750 MG, QD
     Route: 065
     Dates: start: 20151118, end: 20151209
  23. MEDROL [Concomitant]
     Active Substance: METHYLPREDNISOLONE
     Dosage: 38 MG, QD
     Route: 065
  24. PREDNISONE. [Concomitant]
     Active Substance: PREDNISONE
     Indication: PRODUCT USED FOR UNKNOWN INDICATION
     Dosage: 20 MG, QD
     Route: 065
     Dates: start: 20160706, end: 20160706
  25. SANDIMMUNE NEORAL [Suspect]
     Active Substance: CYCLOSPORINE
     Dosage: 100 MG, UNK
     Route: 065
     Dates: start: 20160509
  26. VOLTAREN [Concomitant]
     Active Substance: DICLOFENAC SODIUM
     Indication: JUVENILE IDIOPATHIC ARTHRITIS
     Dosage: 100 MG, QD
     Route: 065
     Dates: start: 20151209, end: 20160113
  27. NAPROSYN [Concomitant]
     Active Substance: NAPROXEN
     Indication: JUVENILE IDIOPATHIC ARTHRITIS
     Dosage: 500 MG, QD
     Route: 065
     Dates: start: 20150901, end: 20151028
  28. NAPROSYN [Concomitant]
     Active Substance: NAPROXEN
     Dosage: 500 MG, QD
     Route: 065
     Dates: start: 20160420

REACTIONS (7)
  - Hypertension [Recovered/Resolved]
  - Inappropriate schedule of drug administration [Unknown]
  - Abdominal pain [Unknown]
  - Hepatomegaly [Unknown]
  - Blood glucose increased [Unknown]
  - Headache [Unknown]
  - Urinary tract infection [Unknown]

NARRATIVE: CASE EVENT DATE: 20160707
